FAERS Safety Report 19215847 (Version 2)
Quarter: 2021Q2

REPORT INFORMATION
  Report Type: Report from Study
  Country: CN (occurrence: CN)
  Receive Date: 20210505
  Receipt Date: 20210512
  Transmission Date: 20210717
  Serious: Yes (Hospitalization, Other)
  Sender: FDA-Public Use
  Company Number: CN-BRISTOL-MYERS SQUIBB COMPANY-BMS-2021-041040

PATIENT
  Age: 58 Year
  Sex: Male

DRUGS (1)
  1. NIVOLUMAB [Suspect]
     Active Substance: NIVOLUMAB
     Indication: GASTRIC CANCER
     Dosage: 200 MILLIGRAM, Q2WK
     Route: 041
     Dates: start: 20200825

REACTIONS (5)
  - Hypoaesthesia [Unknown]
  - Liver disorder [Unknown]
  - Skin exfoliation [Unknown]
  - Asthenia [Unknown]
  - Angiopathy [Unknown]

NARRATIVE: CASE EVENT DATE: 20210426
